FAERS Safety Report 16657394 (Version 3)
Quarter: 2020Q4

REPORT INFORMATION
  Report Type: Spontaneous
  Country: US (occurrence: US)
  Receive Date: 20190801
  Receipt Date: 20201113
  Transmission Date: 20210113
  Serious: Yes (Hospitalization, Other)
  Sender: FDA-Public Use
  Company Number: US-GILEAD-2019-0420475

PATIENT
  Age: 41 Year
  Sex: Female
  Weight: 125.17 kg

DRUGS (174)
  1. NORVIR [Concomitant]
     Active Substance: RITONAVIR
     Dosage: UNK
     Dates: start: 1996
  2. AEROBID [Concomitant]
     Active Substance: FLUNISOLIDE
  3. AZITHROMYCIN ANHYDROUS. [Concomitant]
     Active Substance: AZITHROMYCIN ANHYDROUS
  4. CEPHALEXIN [CEFALEXIN] [Concomitant]
     Active Substance: CEPHALEXIN
  5. DOK [Concomitant]
     Active Substance: DOCUSATE SODIUM
  6. EPIPEN [Concomitant]
     Active Substance: EPINEPHRINE
  7. FLUVIRINE [Concomitant]
  8. IBUPROFEN. [Concomitant]
     Active Substance: IBUPROFEN
  9. INCRUSE ELLIPTA [Concomitant]
     Active Substance: UMECLIDINIUM BROMIDE
  10. KETOCONAZOLE. [Concomitant]
     Active Substance: KETOCONAZOLE
  11. KETOPROFEN. [Concomitant]
     Active Substance: KETOPROFEN
  12. NEXIUM I.V. [Concomitant]
     Active Substance: ESOMEPRAZOLE SODIUM
  13. ONDANSETRON HCL [Concomitant]
     Active Substance: ONDANSETRON HYDROCHLORIDE
  14. PAIN + FEVER [Concomitant]
  15. RISPERIDONE. [Concomitant]
     Active Substance: RISPERIDONE
  16. VALACYCLOVIR [Concomitant]
     Active Substance: VALACYCLOVIR HYDROCHLORIDE
  17. VALTREX [Concomitant]
     Active Substance: VALACYCLOVIR HYDROCHLORIDE
  18. BECLOMETHASONE [BECLOMETASONE] [Concomitant]
     Active Substance: BECLOMETHASONE
     Indication: ASTHMA
     Dosage: UNK
     Dates: start: 2001
  19. TOPROL XL [Concomitant]
     Active Substance: METOPROLOL SUCCINATE
     Indication: CARDIAC FAILURE CONGESTIVE
     Dosage: 12.5 MG
     Dates: start: 20150226
  20. TIVICAY [Concomitant]
     Active Substance: DOLUTEGRAVIR SODIUM
     Dosage: UNK
     Dates: start: 201806
  21. ZIAGEN [Concomitant]
     Active Substance: ABACAVIR SULFATE
  22. ALDACTONE [Concomitant]
     Active Substance: SPIRONOLACTONE
     Dosage: UNK
     Dates: start: 2015, end: 2017
  23. AMOXICILLIN. [Concomitant]
     Active Substance: AMOXICILLIN
  24. PANTOPRAZOLE [Concomitant]
     Active Substance: PANTOPRAZOLE
     Dosage: UNK
     Dates: start: 2009
  25. AMLODIPINE BESYLATE. [Concomitant]
     Active Substance: AMLODIPINE BESYLATE
  26. CETIRIZINE HCL [Concomitant]
     Active Substance: CETIRIZINE HYDROCHLORIDE
  27. DIAZEPAM. [Concomitant]
     Active Substance: DIAZEPAM
  28. DICYCLOMINE [Concomitant]
     Active Substance: DICYCLOMINE HYDROCHLORIDE
  29. DOCUSATE SODIUM. [Concomitant]
     Active Substance: DOCUSATE SODIUM
  30. DOXYCYCLINE MONOHYDRATE [Concomitant]
     Active Substance: DOXYCYCLINE
  31. ENDOCET [Concomitant]
     Active Substance: ACETAMINOPHEN\OXYCODONE HYDROCHLORIDE
  32. FLUCONAZOLE. [Concomitant]
     Active Substance: FLUCONAZOLE
  33. FLUTICASONE. [Concomitant]
     Active Substance: FLUTICASONE
  34. HYDROCODONE [Concomitant]
     Active Substance: HYDROCODONE
  35. LATUDA [Concomitant]
     Active Substance: LURASIDONE HYDROCHLORIDE
  36. LINEZOLID. [Concomitant]
     Active Substance: LINEZOLID
  37. METRONIDAZOLE. [Concomitant]
     Active Substance: METRONIDAZOLE
  38. NITROFURANTOIN MONOHYDRATE [Concomitant]
     Active Substance: NITROFURANTOIN MONOHYDRATE
  39. OXYCODONE AND ACETAMINOPHEN [Concomitant]
     Active Substance: ACETAMINOPHEN\OXYCODONE HYDROCHLORIDE
  40. ROXICET [Concomitant]
     Active Substance: ACETAMINOPHEN\OXYCODONE HYDROCHLORIDE
  41. SYMBICORT [Concomitant]
     Active Substance: BUDESONIDE\FORMOTEROL FUMARATE DIHYDRATE
  42. TIZANIDINE. [Concomitant]
     Active Substance: TIZANIDINE
  43. TORSEMIDE. [Concomitant]
     Active Substance: TORSEMIDE
  44. VEMLIDY [Concomitant]
     Active Substance: TENOFOVIR ALAFENAMIDE FUMARATE
  45. VENTOLIN HFA [Concomitant]
     Active Substance: ALBUTEROL SULFATE
  46. LIPITOR [Concomitant]
     Active Substance: ATORVASTATIN CALCIUM
     Indication: BLOOD CHOLESTEROL INCREASED
     Dosage: UNK
     Dates: start: 2005
  47. REYATAZ [Concomitant]
     Active Substance: ATAZANAVIR SULFATE
  48. DILANTIN [Concomitant]
     Active Substance: PHENYTOIN
  49. BUSPIRONE [Concomitant]
     Active Substance: BUSPIRONE HYDROCHLORIDE
  50. CEFUROXIME. [Concomitant]
     Active Substance: CEFUROXIME
  51. CIPROFLOXACIN. [Concomitant]
     Active Substance: CIPROFLOXACIN
  52. CLOTRIMAZOLE. [Concomitant]
     Active Substance: CLOTRIMAZOLE
  53. CYCLOBENZAPRINE. [Concomitant]
     Active Substance: CYCLOBENZAPRINE
  54. FUROSEMIDE. [Concomitant]
     Active Substance: FUROSEMIDE
  55. LEVOCETIRIZINE [Concomitant]
     Active Substance: LEVOCETIRIZINE
  56. METOPROLOL SUCCINATE. [Concomitant]
     Active Substance: METOPROLOL SUCCINATE
  57. MONTELUKAST [Concomitant]
     Active Substance: MONTELUKAST SODIUM
  58. MUPIROCIN. [Concomitant]
     Active Substance: MUPIROCIN
  59. NICOTINE. [Concomitant]
     Active Substance: NICOTINE
  60. POLYMYXIN B. [Concomitant]
     Active Substance: POLYMYXIN B
  61. POTASSIUM [Concomitant]
     Active Substance: POTASSIUM
  62. TRAMADOL HCL [Concomitant]
     Active Substance: TRAMADOL HYDROCHLORIDE
  63. VENTOLIN [Concomitant]
     Active Substance: ALBUTEROL SULFATE
  64. ALBUTEROL [SALBUTAMOL] [Concomitant]
     Active Substance: ALBUTEROL
     Indication: ASTHMA
     Dosage: UNK
     Dates: start: 2001
  65. ISENTRESS [Concomitant]
     Active Substance: RALTEGRAVIR POTASSIUM
     Dosage: UNK
     Dates: start: 20180503, end: 201907
  66. VIRACEPT [Concomitant]
     Active Substance: NELFINAVIR MESYLATE
  67. COZAAR [Concomitant]
     Active Substance: LOSARTAN POTASSIUM
     Dosage: UNK
     Dates: start: 2009
  68. CORTISONE [Concomitant]
     Active Substance: CORTISONE
     Dosage: UNK
     Dates: start: 2006
  69. LOVENOX [Concomitant]
     Active Substance: ENOXAPARIN SODIUM
     Dosage: UNK
     Dates: start: 2018, end: 2018
  70. METHYLPREDNISOLONE. [Concomitant]
     Active Substance: METHYLPREDNISOLONE
     Dosage: UNK
     Dates: start: 2010
  71. FLEXERIL [CEFIXIME] [Concomitant]
     Active Substance: CEFIXIME
     Indication: MUSCLE SPASMS
     Dosage: UNK
     Dates: start: 2013, end: 2018
  72. AVELOX [Concomitant]
     Active Substance: MOXIFLOXACIN HYDROCHLORIDE
  73. DUREZOL [Concomitant]
     Active Substance: DIFLUPREDNATE
  74. FERROUS SULFATE. [Concomitant]
     Active Substance: FERROUS SULFATE
  75. FLOVENT HFA [Concomitant]
     Active Substance: FLUTICASONE PROPIONATE
  76. LEVETIRACETAM. [Concomitant]
     Active Substance: LEVETIRACETAM
  77. LISINOPRIL. [Concomitant]
     Active Substance: LISINOPRIL
  78. MAPAP [Concomitant]
     Active Substance: ACETAMINOPHEN
  79. METHOCARBAMOL. [Concomitant]
     Active Substance: METHOCARBAMOL
  80. NAPHAZOLINE [Concomitant]
     Active Substance: NAPHAZOLINE\NAPHAZOLINE HYDROCHLORIDE
  81. PROPRANOLOL [Concomitant]
     Active Substance: PROPRANOLOL HYDROCHLORIDE
  82. SINGULAIR [Concomitant]
     Active Substance: MONTELUKAST SODIUM
  83. TRAMADOL. [Concomitant]
     Active Substance: TRAMADOL
  84. TRUVADA [Suspect]
     Active Substance: EMTRICITABINE\TENOFOVIR DISOPROXIL FUMARATE
     Indication: HIV INFECTION
     Dosage: UNK
     Route: 048
     Dates: start: 201001, end: 201506
  85. COMBIVIR [Concomitant]
     Active Substance: LAMIVUDINE\ZIDOVUDINE
  86. ASPIRIN [ACETYLSALICYLIC ACID] [Concomitant]
     Active Substance: ASPIRIN
  87. FAMOTIDINE. [Concomitant]
     Active Substance: FAMOTIDINE
     Dosage: UNK
     Dates: start: 2011
  88. PENICILLIN [PENICILLIN NOS] [Concomitant]
     Active Substance: PENICILLIN
  89. RANITIDINE. [Concomitant]
     Active Substance: RANITIDINE
     Dosage: UNK
     Dates: start: 2008, end: 2018
  90. AMMONIUM LACTATE. [Concomitant]
     Active Substance: AMMONIUM LACTATE
     Indication: DRY SKIN
     Dosage: UNK
     Dates: start: 2016, end: 2017
  91. ACYCLOVIR [ACICLOVIR] [Concomitant]
     Active Substance: ACYCLOVIR
  92. DAILY-VITE [Concomitant]
  93. DIVALPROEX [Concomitant]
     Active Substance: DIVALPROEX SODIUM
  94. FLUARIX QUADRIVALENT [Concomitant]
  95. HYDROCODONE/ACETAMINOPHEN [Concomitant]
     Active Substance: ACETAMINOPHEN\HYDROCODONE
  96. LAMOTRIGINE. [Concomitant]
     Active Substance: LAMOTRIGINE
  97. LIDOCAINE. [Concomitant]
     Active Substance: LIDOCAINE
  98. MIRTAZAPINE. [Concomitant]
     Active Substance: MIRTAZAPINE
  99. MONTELUKAST SODIUM. [Concomitant]
     Active Substance: MONTELUKAST SODIUM
  100. NAPROXEN. [Concomitant]
     Active Substance: NAPROXEN
  101. NITRO-BID [Concomitant]
     Active Substance: NITROGLYCERIN
  102. NITROFURANTOIN. [Concomitant]
     Active Substance: NITROFURANTOIN
  103. NYSTATIN. [Concomitant]
     Active Substance: NYSTATIN
  104. POLYETHYLENE GLYCOL [MACROGOL] [Concomitant]
     Active Substance: POLYETHYLENE GLYCOLS
  105. PROPOXYPHENE-N [Concomitant]
     Active Substance: PROPOXYPHENE HYDROCHLORIDE
  106. RITONAVIR. [Concomitant]
     Active Substance: RITONAVIR
  107. TRETINOIN. [Concomitant]
     Active Substance: TRETINOIN
  108. INTELENCE [Concomitant]
     Active Substance: ETRAVIRINE
  109. PREZISTA [Concomitant]
     Active Substance: DARUNAVIR ETHANOLATE
     Dosage: UNK
     Dates: start: 201707, end: 201906
  110. RETROVIR [Concomitant]
     Active Substance: ZIDOVUDINE
     Dosage: UNK
     Dates: start: 1996
  111. AMITRIPTYLINE [Concomitant]
     Active Substance: AMITRIPTYLINE
  112. BACTRIM [Concomitant]
     Active Substance: SULFAMETHOXAZOLE\TRIMETHOPRIM
  113. DEPAKOTE [Concomitant]
     Active Substance: DIVALPROEX SODIUM
     Dosage: UNK
     Dates: start: 2016, end: 2017
  114. HEPARIN [Concomitant]
     Active Substance: HEPARIN SODIUM
  115. LASIX [Concomitant]
     Active Substance: FUROSEMIDE
     Dosage: UNK
     Dates: start: 2009
  116. PREDNISONE. [Concomitant]
     Active Substance: PREDNISONE
     Dosage: UNK
     Dates: start: 2002
  117. CYMBALTA [Concomitant]
     Active Substance: DULOXETINE HYDROCHLORIDE
  118. DULOXETINE. [Concomitant]
     Active Substance: DULOXETINE
  119. ERYTHROMYCIN. [Concomitant]
     Active Substance: ERYTHROMYCIN
  120. FLUOXETINE [Concomitant]
     Active Substance: FLUOXETINE HYDROCHLORIDE
  121. GENTAMICIN. [Concomitant]
     Active Substance: GENTAMICIN
  122. HYDROCODONE BITARTRATE AND ACETAMINOPHEN [Concomitant]
     Active Substance: ACETAMINOPHEN\HYDROCODONE BITARTRATE
  123. HYDROCORTISONE. [Concomitant]
     Active Substance: HYDROCORTISONE
  124. ILEVRO [Concomitant]
     Active Substance: NEPAFENAC
  125. IMIQUIMOD. [Concomitant]
     Active Substance: IMIQUIMOD
  126. LOPERAMIDE [Concomitant]
     Active Substance: LOPERAMIDE
  127. MELOXICAM. [Concomitant]
     Active Substance: MELOXICAM
  128. METOPROLOL. [Concomitant]
     Active Substance: METOPROLOL
  129. NARCAN [Concomitant]
     Active Substance: NALOXONE HYDROCHLORIDE
  130. NORTRIPTYLINE HCL [Concomitant]
     Active Substance: NORTRIPTYLINE HYDROCHLORIDE
  131. OXYCODONE/APAP [Concomitant]
     Active Substance: ACETAMINOPHEN\OXYCODONE HYDROCHLORIDE
  132. OXYCODONE HYDROCHLORIDE. [Concomitant]
     Active Substance: OXYCODONE HYDROCHLORIDE
  133. PANTOPRAZOLE SODIUM. [Concomitant]
     Active Substance: PANTOPRAZOLE SODIUM
  134. SENNA-S [DOCUSATE SODIUM;SENNA ALEXANDRINA] [Concomitant]
  135. TENOFOVIR [Concomitant]
     Active Substance: TENOFOVIR
  136. TOPIRAMATE. [Concomitant]
     Active Substance: TOPIRAMATE
  137. TRAZODONE [Concomitant]
     Active Substance: TRAZODONE HYDROCHLORIDE
  138. TRUVADA [Suspect]
     Active Substance: EMTRICITABINE\TENOFOVIR DISOPROXIL FUMARATE
     Dosage: UNK
     Route: 065
     Dates: start: 20090727, end: 20120121
  139. VIREAD [Suspect]
     Active Substance: TENOFOVIR DISOPROXIL FUMARATE
     Dosage: UNK
     Route: 065
     Dates: start: 20121212, end: 201810
  140. KALETRA [Concomitant]
     Active Substance: LOPINAVIR\RITONAVIR
  141. DEXILANT [Concomitant]
     Active Substance: DEXLANSOPRAZOLE
  142. ESOMEPRAZOLE. [Concomitant]
     Active Substance: ESOMEPRAZOLE MAGNESIUM
     Dosage: UNK
     Dates: start: 2011
  143. LANSOPRAZOLE. [Concomitant]
     Active Substance: LANSOPRAZOLE
     Dosage: UNK
     Dates: start: 2009, end: 2010
  144. AZELASTINE. [Concomitant]
     Active Substance: AZELASTINE HYDROCHLORIDE
  145. BENZOYL PEROXIDE. [Concomitant]
     Active Substance: BENZOYL PEROXIDE
  146. CARAFATE [Concomitant]
     Active Substance: SUCRALFATE
  147. CEROVITE [Concomitant]
     Active Substance: FOLIC ACID\IRON
  148. EFFEXOR [Concomitant]
     Active Substance: VENLAFAXINE HYDROCHLORIDE
  149. ENOXAPARIN [Concomitant]
     Active Substance: ENOXAPARIN
  150. LEVOFLOXACIN. [Concomitant]
     Active Substance: LEVOFLOXACIN
  151. LOSARTAN POTASSIUM. [Concomitant]
     Active Substance: LOSARTAN POTASSIUM
  152. OMEPRAZOLE. [Concomitant]
     Active Substance: OMEPRAZOLE
  153. ONDANSETRON [Concomitant]
     Active Substance: ONDANSETRON
  154. OXYCODONE [Concomitant]
     Active Substance: OXYCODONE
  155. PATADAY [Concomitant]
     Active Substance: OLOPATADINE HYDROCHLORIDE
  156. PROMETHAZINE [Concomitant]
     Active Substance: PROMETHAZINE HYDROCHLORIDE
  157. SPIRIVA [Concomitant]
     Active Substance: TIOTROPIUM BROMIDE MONOHYDRATE
  158. SPIRONOLACTONE. [Concomitant]
     Active Substance: SPIRONOLACTONE
  159. SUCRALFATE. [Concomitant]
     Active Substance: SUCRALFATE
  160. VALACYCLOVIR HCL [Concomitant]
     Active Substance: VALACYCLOVIR HYDROCHLORIDE
  161. VIREAD [Suspect]
     Active Substance: TENOFOVIR DISOPROXIL FUMARATE
     Indication: HIV INFECTION
     Dosage: UNK
     Route: 048
     Dates: start: 201506, end: 201805
  162. ELIQUIS [Concomitant]
     Active Substance: APIXABAN
     Indication: ATRIAL FIBRILLATION
     Dosage: UNK
     Dates: start: 2018
  163. ACETAMINOPHEN. [Concomitant]
     Active Substance: ACETAMINOPHEN
  164. CELEBREX [Concomitant]
     Active Substance: CELECOXIB
     Dosage: UNK
     Dates: start: 2007, end: 2010
  165. BANOPHEN [Concomitant]
     Active Substance: DIPHENHYDRAMINE HYDROCHLORIDE
  166. DOXYCYCLINE HYCLATE. [Concomitant]
     Active Substance: DOXYCYCLINE HYCLATE
  167. GABAPENTIN. [Concomitant]
     Active Substance: GABAPENTIN
  168. HYDROCODONE/HOMATROPINE [Concomitant]
     Active Substance: HOMATROPINE METHYLBROMIDE\HYDROCODONE BITARTRATE
  169. IPRATROPIUM [Concomitant]
     Active Substance: IPRATROPIUM
  170. IPRATROPIUM/ALBUTEROL [Concomitant]
     Active Substance: ALBUTEROL\IPRATROPIUM
  171. ONDANSETRON ODT [Concomitant]
     Active Substance: ONDANSETRON
  172. PROAIR HFA [Concomitant]
     Active Substance: ALBUTEROL SULFATE
  173. TIZANIDINE HCL [Concomitant]
     Active Substance: TIZANIDINE HYDROCHLORIDE
  174. VENLAFAXINE HCL [Concomitant]
     Active Substance: VENLAFAXINE HYDROCHLORIDE

REACTIONS (11)
  - Pain [Unknown]
  - Anhedonia [Unknown]
  - Acute kidney injury [Recovered/Resolved]
  - Emotional distress [Unknown]
  - Decreased activity [Not Recovered/Not Resolved]
  - Depression [Not Recovered/Not Resolved]
  - Renal impairment [Not Recovered/Not Resolved]
  - Chronic kidney disease [Not Recovered/Not Resolved]
  - Renal failure [Unknown]
  - Anxiety [Not Recovered/Not Resolved]
  - Economic problem [Unknown]

NARRATIVE: CASE EVENT DATE: 201703
